FAERS Safety Report 6733846-5 (Version None)
Quarter: 2010Q2

REPORT INFORMATION
  Report Type: 
  Country: None (occurrence: None)
  Receive Date: 20100520
  Receipt Date: 20100514
  Transmission Date: 20101027
  Serious: Yes (Death)
  Sender: FDA-Public Use
  Company Number: CA-CELGENEUS-028-21880-10011485

PATIENT
  Age: 50 Year
  Sex: Female

DRUGS (2)
  1. REVLIMID [Suspect]
     Indication: AMYLOIDOSIS
     Route: 048
  2. REVLIMID [Suspect]

REACTIONS (3)
  - AMYLOIDOSIS [None]
  - ARRHYTHMIA [None]
  - SUDDEN DEATH [None]
